FAERS Safety Report 9383779 (Version 1)
Quarter: 2013Q3

REPORT INFORMATION
  Report Type: Spontaneous
  Country: US (occurrence: US)
  Receive Date: 20130704
  Receipt Date: 20130704
  Transmission Date: 20140515
  Serious: No
  Sender: FDA-Public Use
  Company Number: US-009507513-1307USA001938

PATIENT
  Sex: Female

DRUGS (4)
  1. CLARITIN [Suspect]
     Indication: SNEEZING
     Dosage: UNK, UNKNOWN
     Route: 048
  2. CLARITIN [Suspect]
     Indication: RHINORRHOEA
  3. CLARITIN [Suspect]
     Indication: LACRIMATION INCREASED
  4. CLARITIN [Suspect]
     Indication: MEDICAL OBSERVATION

REACTIONS (1)
  - Drug ineffective [Unknown]
